FAERS Safety Report 6861864-5 (Version None)
Quarter: 2010Q3

REPORT INFORMATION
  Report Type: 
  Country: None (occurrence: None)
  Receive Date: 20100721
  Receipt Date: 20100713
  Transmission Date: 20110219
  Serious: No
  Sender: FDA-Public Use
  Company Number: 2008BI025978

PATIENT
  Age: 20 Year
  Sex: Female

DRUGS (1)
  1. TYSABRI [Suspect]
     Indication: MULTIPLE SCLEROSIS
     Route: 042
     Dates: start: 20080917, end: 20080917

REACTIONS (13)
  - EAR PAIN [None]
  - FATIGUE [None]
  - GINGIVAL RECESSION [None]
  - HEADACHE [None]
  - NASOPHARYNGITIS [None]
  - OROPHARYNGEAL PAIN [None]
  - PAIN IN JAW [None]
  - PARANASAL SINUS HYPERSECRETION [None]
  - PERIODONTAL INFECTION [None]
  - TOOTH ABSCESS [None]
  - TOOTH DISORDER [None]
  - TOOTH IMPACTED [None]
  - UPPER RESPIRATORY TRACT INFECTION [None]
